FAERS Safety Report 24400407 (Version 2)
Quarter: 2025Q3

REPORT INFORMATION
  Report Type: Report from Study
  Country: ZA (occurrence: ZA)
  Receive Date: 20241005
  Receipt Date: 20250810
  Transmission Date: 20251021
  Serious: Yes (Other)
  Sender: ALEXION PHARMACEUTICALS
  Company Number: ZA-AstraZeneca-CH-00709161A

PATIENT
  Age: 87 Year
  Sex: Female

DRUGS (8)
  1. DAPAGLIFLOZIN [Suspect]
     Active Substance: DAPAGLIFLOZIN
     Indication: Type 2 diabetes mellitus
  2. NEUROBION [Concomitant]
     Active Substance: CYANOCOBALAMIN\PYRIDOXINE\THIAMINE
  3. Synaleve [Concomitant]
     Indication: Pain
  4. TOBRADEX [Concomitant]
     Active Substance: DEXAMETHASONE\TOBRAMYCIN
  5. FUROSEMIDE [Concomitant]
     Active Substance: FUROSEMIDE
     Indication: Hypertension
  6. Cyclivex [Concomitant]
  7. PREDNISONE [Concomitant]
     Active Substance: PREDNISONE
  8. TELMISARTAN [Concomitant]
     Active Substance: TELMISARTAN

REACTIONS (2)
  - Bell^s palsy [Unknown]
  - Glomerular filtration rate decreased [Unknown]
